FAERS Safety Report 17531284 (Version 1)
Quarter: 2020Q1

REPORT INFORMATION
  Report Type: Spontaneous
  Country: US (occurrence: US)
  Receive Date: 20200312
  Receipt Date: 20200312
  Transmission Date: 20200409
  Serious: No
  Sender: FDA-Public Use
  Company Number: US-009507513-2003USA001672

PATIENT
  Sex: Female

DRUGS (21)
  1. FOSAMAX [Concomitant]
     Active Substance: ALENDRONATE SODIUM
  2. CALCIUM (UNSPECIFIED) [Concomitant]
     Active Substance: CALCIUM
  3. LORAZEPAM. [Concomitant]
     Active Substance: LORAZEPAM
  4. METOPROLOL. [Concomitant]
     Active Substance: METOPROLOL
  5. PRILOSEC [Concomitant]
     Active Substance: OMEPRAZOLE MAGNESIUM
  6. ALLEGRA [Concomitant]
     Active Substance: FEXOFENADINE HYDROCHLORIDE
  7. DITROPAN [Concomitant]
     Active Substance: OXYBUTYNIN CHLORIDE
  8. MAGNESIUM (UNSPECIFIED) [Concomitant]
     Active Substance: MAGNESIUM
  9. OMEPRAZOLE. [Concomitant]
     Active Substance: OMEPRAZOLE
  10. COZAAR [Concomitant]
     Active Substance: LOSARTAN POTASSIUM
  11. DOXEPIN HYDROCHLORIDE. [Concomitant]
     Active Substance: DOXEPIN HYDROCHLORIDE
  12. CALCIUM (UNSPECIFIED) [Concomitant]
     Active Substance: CALCIUM
  13. INTRON A [Suspect]
     Active Substance: INTERFERON ALFA-2B
     Indication: BLOOD DISORDER
     Dosage: 18 MILLION UNITS MULTIDOSE VIAL, DOSE OF 2.5 MU
     Route: 058
     Dates: start: 20150815
  14. FLAXSEED [Concomitant]
     Active Substance: FLAX SEED
  15. ASPIRIN. [Concomitant]
     Active Substance: ASPIRIN
  16. PROLIA [Concomitant]
     Active Substance: DENOSUMAB
  17. CHOLECALCIFEROL [Concomitant]
     Active Substance: CHOLECALCIFEROL
  18. ZONISAMIDE. [Concomitant]
     Active Substance: ZONISAMIDE
  19. LEXAPRO [Concomitant]
     Active Substance: ESCITALOPRAM OXALATE
  20. VITAMINS (UNSPECIFIED) [Concomitant]
     Active Substance: VITAMINS
  21. OXYBUTYNIN. [Concomitant]
     Active Substance: OXYBUTYNIN CHLORIDE

REACTIONS (4)
  - Memory impairment [Unknown]
  - Product use in unapproved indication [Unknown]
  - Fatigue [Unknown]
  - Product dose omission [Unknown]
